FAERS Safety Report 6916772-8 (Version None)
Quarter: 2010Q3

REPORT INFORMATION
  Report Type: 
  Country: None (occurrence: None)
  Receive Date: 20100805
  Receipt Date: 20100727
  Transmission Date: 20110219
  Serious: Yes (Hospitalization)
  Sender: FDA-Public Use
  Company Number: 016172

PATIENT
  Sex: Male

DRUGS (12)
  1. NEUPRO [Suspect]
     Indication: PARKINSON'S DISEASE
     Dosage: 2 MG QD TRANSDERMAL, 4 MG QD TRANSDERMAL
     Route: 062
     Dates: start: 20100503, end: 20100510
  2. NEUPRO [Suspect]
     Indication: PARKINSON'S DISEASE
     Dosage: 2 MG QD TRANSDERMAL, 4 MG QD TRANSDERMAL
     Route: 062
     Dates: start: 20100511, end: 20100622
  3. MIRAPEXIN (MIRAPEXIN) [Suspect]
     Indication: PARKINSON'S DISEASE
     Dosage: 0.7 MG BID ORAL, 0.7 MG, 4.5 INTAKES DAILY)
     Route: 048
     Dates: start: 20070503, end: 20100502
  4. MIRAPEXIN (MIRAPEXIN) [Suspect]
     Indication: PARKINSON'S DISEASE
     Dosage: 0.7 MG BID ORAL, 0.7 MG, 4.5 INTAKES DAILY)
     Route: 048
     Dates: start: 20100503, end: 20100702
  5. STALEVO 100 [Concomitant]
  6. SINEMET [Concomitant]
  7. TAMSULOSIN HYDROCHLORIDE [Concomitant]
  8. ASCRIPTION /00058201/ [Concomitant]
  9. PRADIF [Concomitant]
  10. PLENDIL [Concomitant]
  11. LOSAPREX [Concomitant]
  12. POTASSIUM CHLORIDE [Concomitant]

REACTIONS (5)
  - DIZZINESS [None]
  - FALL [None]
  - INJURY [None]
  - SYNCOPE [None]
  - VISION BLURRED [None]
